FAERS Safety Report 8515537 (Version 2)
Quarter: 2013Q4

REPORT INFORMATION
  Report Type: Spontaneous
  Country: US (occurrence: US)
  Receive Date: 20120417
  Receipt Date: 20131001
  Transmission Date: 20140711
  Serious: Yes (Hospitalization)
  Sender: FDA-Public Use
  Company Number: US-B.I. PHARMACEUTICALS,INC./RIDGEFIELD-2012-BP-06735BP

PATIENT
  Age: 71 Year
  Sex: Male

DRUGS (6)
  1. PRADAXA [Suspect]
     Indication: ATRIAL FIBRILLATION
     Dosage: 300 MG
     Route: 048
     Dates: start: 201010
  2. PRADAXA [Suspect]
     Indication: EMBOLISM
     Dosage: 300 MG
     Route: 048
     Dates: start: 201010
  3. CARVEDILOL [Concomitant]
     Dosage: 6.25 MG
     Route: 048
  4. LISINOPRIL [Concomitant]
     Indication: HYPERTENSION
  5. METFORMIN [Concomitant]
     Indication: DIABETES MELLITUS
     Dosage: 1500 MG
     Route: 048
  6. SIMCOR [Concomitant]
     Indication: BLOOD CHOLESTEROL INCREASED
     Dosage: DAILY STRENGTH 50 MG / 20 MG, DAILY DOSE 50 MG/20MG
     Route: 048

REACTIONS (16)
  - Post procedural haemorrhage [Recovered/Resolved]
  - Intestinal obstruction [Recovered/Resolved]
  - Hernia [Recovered/Resolved]
  - Incision site complication [Recovered/Resolved]
  - Hernia [Recovered/Resolved]
  - Coronary artery occlusion [Recovered/Resolved]
  - Aortic valve replacement [Recovered/Resolved]
  - Ileus [Recovered/Resolved]
  - Incisional hernia [Not Recovered/Not Resolved]
  - Fall [Recovered/Resolved]
  - Head injury [Recovered/Resolved]
  - Swelling [Recovered/Resolved]
  - Joint injury [Recovered/Resolved]
  - Intervertebral disc degeneration [Not Recovered/Not Resolved]
  - Gait disturbance [Not Recovered/Not Resolved]
  - Fall [Recovered/Resolved]
